FAERS Safety Report 11198714 (Version 2)
Quarter: 2015Q3

REPORT INFORMATION
  Report Type: Spontaneous
  Country: IT (occurrence: None)
  Receive Date: 20150616
  Receipt Date: 20150706
  Transmission Date: 20151125
  Serious: Yes (Death, Hospitalization, Other)
  Sender: FDA-Public Use
  Company Number: 2015SGN00725

PATIENT
  Age: 24 Year
  Sex: Male

DRUGS (2)
  1. ADCETRIS [Suspect]
     Active Substance: BRENTUXIMAB VEDOTIN
     Indication: NON-HODGKIN^S LYMPHOMA REFRACTORY
     Route: 042
     Dates: start: 20150318, end: 20150318
  2. NYSTATIN. [Concomitant]
     Active Substance: NYSTATIN

REACTIONS (4)
  - Peripheral motor neuropathy [None]
  - Cardiac arrest [None]
  - Epstein-Barr viraemia [None]
  - Peripheral sensory neuropathy [None]

NARRATIVE: CASE EVENT DATE: 20150408
